FAERS Safety Report 16046818 (Version 4)
Quarter: 2019Q2

REPORT INFORMATION
  Report Type: Spontaneous
  Country: US (occurrence: US)
  Receive Date: 20190307
  Receipt Date: 20190607
  Transmission Date: 20190711
  Serious: No
  Sender: FDA-Public Use
  Company Number: US-PFIZER INC-2019038107

PATIENT
  Age: 69 Year
  Sex: Female
  Weight: 53 kg

DRUGS (4)
  1. LYRICA [Suspect]
     Active Substance: PREGABALIN
     Indication: DIABETIC NEUROPATHY
     Dosage: 75 MG, UNK
  2. LYRICA [Suspect]
     Active Substance: PREGABALIN
     Indication: NEUROPATHY PERIPHERAL
     Dosage: 100 MG, 3X/DAY
     Route: 048
     Dates: start: 2019, end: 2019
  3. LYRICA [Suspect]
     Active Substance: PREGABALIN
     Indication: LUMBAR RADICULOPATHY
  4. LYRICA [Suspect]
     Active Substance: PREGABALIN
     Indication: PAIN
     Dosage: 150 MG, 3X/DAY
     Route: 048
     Dates: start: 2018, end: 201901

REACTIONS (6)
  - Gait disturbance [Recovered/Resolved]
  - Dysarthria [Recovered/Resolved]
  - Product use issue [Unknown]
  - Feeling drunk [Recovered/Resolved]
  - Intentional dose omission [Unknown]
  - Off label use [Unknown]

NARRATIVE: CASE EVENT DATE: 2018
